FAERS Safety Report 8928894 (Version 3)
Quarter: 2013Q1

REPORT INFORMATION
  Report Type: Spontaneous
  Country: DE (occurrence: DE)
  Receive Date: 20121128
  Receipt Date: 20130123
  Transmission Date: 20140127
  Serious: Yes (Life-Threatening)
  Sender: FDA-Public Use
  Company Number: DE-BRISTOL-MYERS SQUIBB COMPANY-17154261

PATIENT
  Age: 85 Year
  Sex: Female
  Weight: 66 kg

DRUGS (11)
  1. ONGLYZA TABS 2.5 MG [Suspect]
     Indication: TYPE 2 DIABETES MELLITUS
     Dates: start: 20121108, end: 20121114
  2. PREDNISOLONE [Concomitant]
     Indication: RENAL FAILURE CHRONIC
     Dosage: 5 UNIT NOT SPECIFIED
     Route: 048
  3. ALLOPURINOL [Concomitant]
     Indication: HYPERURICAEMIA
     Dosage: 300 UNIT NOT SPECIFIED
     Route: 048
  4. FUROSEMIDE [Concomitant]
     Indication: CARDIAC FAILURE
     Dosage: 45 UNIT NOT SPECIFIED
     Route: 048
  5. OMEPRAZOLE [Concomitant]
     Indication: GASTRITIS
     Dosage: 20 UNIT NOT SPECIFIED
     Route: 048
  6. MARCUMAR [Concomitant]
     Indication: ATRIAL FIBRILLATION
     Route: 048
  7. NEBIVOLOL [Concomitant]
     Indication: HYPERTENSION
     Route: 048
  8. RAMIPRIL [Concomitant]
     Indication: HYPERTENSION
     Route: 048
  9. ZOPICLONE [Concomitant]
     Indication: RENAL FAILURE
     Route: 048
  10. ALPHACALCIDOL [Concomitant]
  11. VITAMIN D [Concomitant]

REACTIONS (1)
  - Acute hepatic failure [Recovered/Resolved]
